FAERS Safety Report 17904510 (Version 2)
Quarter: 2020Q2

REPORT INFORMATION
  Report Type: Spontaneous
  Country: US (occurrence: US)
  Receive Date: 20200617
  Receipt Date: 20200623
  Transmission Date: 20200714
  Serious: No
  Sender: FDA-Public Use
  Company Number: US-HORIZON-TEP-0470-2020

PATIENT
  Age: 63 Year
  Sex: Male
  Weight: 74.84 kg

DRUGS (5)
  1. TEPEZZA [Suspect]
     Active Substance: TEPROTUMUMAB-TRBW
     Indication: ENDOCRINE OPHTHALMOPATHY
     Dosage: EVERY 3 WEEKS
     Route: 042
     Dates: start: 20200501
  2. LOSARTAN. [Concomitant]
     Active Substance: LOSARTAN
  3. METHIMAZOLE. [Concomitant]
     Active Substance: METHIMAZOLE
  4. IBUPROFEN. [Concomitant]
     Active Substance: IBUPROFEN
     Dosage: OCCASIONALLY
  5. SIMVASTATIN. [Concomitant]
     Active Substance: SIMVASTATIN

REACTIONS (1)
  - Fatigue [Not Recovered/Not Resolved]

NARRATIVE: CASE EVENT DATE: 202005
